FAERS Safety Report 7757004-0 (Version None)
Quarter: 2011Q3

REPORT INFORMATION
  Report Type: 
  Country: None (occurrence: None)
  Receive Date: 20110916
  Receipt Date: 20110916
  Transmission Date: 20111222
  Serious: Yes (Hospitalization)
  Sender: FDA-Public Use
  Company Number: None

PATIENT
  Age: 44 Year
  Sex: Female
  Weight: 76.657 kg

DRUGS (2)
  1. ARMOUR [Concomitant]
  2. NUVARING [Suspect]
     Indication: MENSTRUAL DISORDER
     Dosage: 1 RING
     Route: 067
     Dates: start: 20110527, end: 20110712

REACTIONS (6)
  - OEDEMA PERIPHERAL [None]
  - CHEST PAIN [None]
  - INSOMNIA [None]
  - BURNING SENSATION [None]
  - CONTUSION [None]
  - PAIN IN EXTREMITY [None]
